FAERS Safety Report 8623914-5 (Version None)
Quarter: 2012Q3

REPORT INFORMATION
  Report Type: 
  Country: None (occurrence: None)
  Receive Date: 20120827
  Receipt Date: 20120817
  Transmission Date: 20120928
  Serious: Yes (Other)
  Sender: FDA-Public Use
  Company Number: PHHY2012MX072039

PATIENT
  Sex: Female

DRUGS (4)
  1. SENOKOT [Concomitant]
     Indication: CONSTIPATION
     Dosage: 1 DF, PER DAY
  2. OMEPRAZOLE [Concomitant]
     Indication: GASTROOESOPHAGEAL REFLUX DISEASE
     Dosage: 1 DF, DAILY
  3. VALSARTAN/HYDROCHLOROTHIAZIDE [Suspect]
     Indication: HYPERTENSION
     Dosage: 1 DF (160 MG VALSARTAN AND 12.5 MG HYDROCHLOROTHIAZIDE), PER DAY
     Dates: start: 20110201
  4. STALEVO 100 [Suspect]
     Dosage: 1 DF, (200/100/25 MG)

REACTIONS (3)
  - ANKLE FRACTURE [None]
  - BODY TEMPERATURE INCREASED [None]
  - BLOOD PRESSURE DECREASED [None]
